FAERS Safety Report 21777895 (Version 7)
Quarter: 2024Q4

REPORT INFORMATION
  Report Type: Report from Study
  Country: CA (occurrence: CA)
  Receive Date: 20221226
  Receipt Date: 20241105
  Transmission Date: 20250115
  Serious: Yes (Other)
  Sender: TAKEDA
  Company Number: CA-TAKEDA-2022TUS013785

PATIENT
  Age: 53 Year
  Sex: Female

DRUGS (20)
  1. VEDOLIZUMAB [Suspect]
     Active Substance: VEDOLIZUMAB
     Indication: Crohn^s disease
     Dosage: 300 MILLIGRAM
     Route: 042
     Dates: start: 20211119
  2. VEDOLIZUMAB [Suspect]
     Active Substance: VEDOLIZUMAB
     Dosage: 300 MILLIGRAM
     Route: 042
  3. VEDOLIZUMAB [Suspect]
     Active Substance: VEDOLIZUMAB
     Dosage: 300 MILLIGRAM, Q4WEEKS
     Route: 042
     Dates: start: 20230203
  4. VEDOLIZUMAB [Suspect]
     Active Substance: VEDOLIZUMAB
     Dosage: 300 MILLIGRAM, Q4WEEKS
     Route: 042
     Dates: start: 20230203
  5. VEDOLIZUMAB [Suspect]
     Active Substance: VEDOLIZUMAB
     Dosage: 300 MILLIGRAM, Q4WEEKS
     Route: 042
  6. VEDOLIZUMAB [Suspect]
     Active Substance: VEDOLIZUMAB
     Dosage: 300 MILLIGRAM, Q4WEEKS
     Route: 042
  7. VEDOLIZUMAB [Suspect]
     Active Substance: VEDOLIZUMAB
     Dosage: 300 MILLIGRAM, Q4WEEKS
     Route: 042
  8. INSULIN NOS [Concomitant]
     Active Substance: INSULIN NOS
     Dosage: UNK
  9. METAMUCIL [Concomitant]
     Active Substance: PLANTAGO SEED
     Dosage: UNK
  10. OZEMPIC [Concomitant]
     Active Substance: SEMAGLUTIDE
     Dosage: UNK
  11. IMODIUM [Concomitant]
     Active Substance: LOPERAMIDE HYDROCHLORIDE
     Dosage: UNK
  12. B12 [Concomitant]
     Dosage: UNK
     Route: 030
  13. PREGABALIN [Concomitant]
     Active Substance: PREGABALIN
     Dosage: UNK
  14. RAMIPRIL [Concomitant]
     Active Substance: RAMIPRIL
     Dosage: UNK
  15. CHOLESTYRAMINE [Concomitant]
     Active Substance: CHOLESTYRAMINE
     Dosage: UNK
  16. BENADRYL [Concomitant]
     Active Substance: DIPHENHYDRAMINE HYDROCHLORIDE
     Indication: Pruritus
     Dosage: 50 MILLIGRAM
     Route: 048
     Dates: start: 20220211
  17. CYMBALTA [Concomitant]
     Active Substance: DULOXETINE HYDROCHLORIDE
     Dosage: 60 MILLIGRAM
     Route: 048
  18. GLUCOPHAGE [Concomitant]
     Active Substance: METFORMIN HYDROCHLORIDE
     Dosage: 1000 MILLIGRAM, BID
     Route: 048
  19. PREDNISONE [Concomitant]
     Active Substance: PREDNISONE
     Dosage: 50 MILLIGRAM
     Route: 048
     Dates: start: 20220222
  20. ALTACE [Concomitant]
     Active Substance: RAMIPRIL
     Dosage: 10 MILLIGRAM, QD
     Route: 048

REACTIONS (18)
  - Renal impairment [Unknown]
  - Intestinal fistula [Unknown]
  - Intestinal stenosis [Unknown]
  - Crohn^s disease [Unknown]
  - Rectal polyp [Unknown]
  - Abdominal mass [Unknown]
  - Off label use [Unknown]
  - Bile acid malabsorption [Unknown]
  - Vitamin B12 decreased [Unknown]
  - Therapeutic reaction time decreased [Unknown]
  - Hepatic steatosis [Unknown]
  - Pulmonary granuloma [Unknown]
  - Renal cyst [Unknown]
  - Abdominal adhesions [Unknown]
  - Abdominal pain [Unknown]
  - Discomfort [Unknown]
  - Abdominal distension [Unknown]
  - Constipation [Unknown]

NARRATIVE: CASE EVENT DATE: 20230203
